FAERS Safety Report 6629605-4 (Version None)
Quarter: 2010Q1

REPORT INFORMATION
  Report Type: 
  Country: None (occurrence: None)
  Receive Date: 20100311
  Receipt Date: 20100226
  Transmission Date: 20100710
  Serious: Yes (Hospitalization)
  Sender: FDA-Public Use
  Company Number: US-ELI_LILLY_AND_COMPANY-US201003000768

PATIENT
  Age: 86 Year
  Sex: Male

DRUGS (12)
  1. FORTEO [Suspect]
     Indication: OSTEOPOROSIS
     Dosage: 20 UG, DAILY (1/D)
     Dates: end: 20100223
  2. OMEPRAZOLE [Concomitant]
     Indication: REGURGITATION
     Dosage: 20 MG, UNK
  3. SIMVASTATIN [Concomitant]
     Dosage: 10 MG, DAILY (1/D)
  4. PAROXETINE HCL [Concomitant]
     Dosage: 10 MG, UNK
  5. LISINOPRIL [Concomitant]
     Dosage: 40 MG, DAILY (1/D)
  6. FUROSEMIDE [Concomitant]
     Dosage: 10 MG, DAILY (1/D)
  7. BABY ASPIRIN [Concomitant]
  8. ANDROGEL [Concomitant]
     Indication: ANDROGEN DEFICIENCY
  9. MULTI-VITAMIN [Concomitant]
  10. LOVAZA [Concomitant]
  11. CALCIUM [Concomitant]
     Dosage: 1000 MG, UNK
  12. GLUCOSAMINE [Concomitant]
     Dosage: UNK, DAILY (1/D)

REACTIONS (1)
  - MYOCARDIAL INFARCTION [None]
